FAERS Safety Report 5910876-4 (Version None)
Quarter: 2008Q4

REPORT INFORMATION
  Report Type: 
  Country: None (occurrence: None)
  Receive Date: 20081007
  Receipt Date: 20080609
  Transmission Date: 20090506
  Serious: Yes (Other)
  Sender: FDA-Public Use
  Company Number: US-ASTRAZENECA-2008UW11741

PATIENT
  Age: 73 Year
  Sex: Female

DRUGS (5)
  1. ARIMIDEX [Suspect]
     Route: 048
  2. ZETIA [Concomitant]
  3. ZOCOR [Concomitant]
  4. ZANTAC [Concomitant]
  5. ASPIRIN [Concomitant]

REACTIONS (1)
  - BREAST CANCER RECURRENT [None]
